FAERS Safety Report 13212426 (Version 2)
Quarter: 2017Q1

REPORT INFORMATION
  Report Type: Spontaneous
  Country: CH (occurrence: CH)
  Receive Date: 20170210
  Receipt Date: 20170217
  Transmission Date: 20170428
  Serious: Yes (Death, Hospitalization)
  Sender: FDA-Public Use
  Company Number: CH-PFIZER INC-2017057494

PATIENT
  Age: 80 Year
  Sex: Male

DRUGS (18)
  1. VITAMIN D3 [Concomitant]
     Active Substance: CHOLECALCIFEROL
     Dosage: UNK
  2. ELIQUIS [Concomitant]
     Active Substance: APIXABAN
     Dosage: UNK
  3. TOREM [Concomitant]
     Active Substance: TORSEMIDE
     Dosage: UNK
  4. ATORVASTATIN [Concomitant]
     Active Substance: ATORVASTATIN
     Dosage: UNK
  5. CORDARONE [Suspect]
     Active Substance: AMIODARONE HYDROCHLORIDE
     Dosage: 200 MG, 1X/DAY
     Route: 048
     Dates: start: 20161218, end: 20161218
  6. DIGOXIN SANDOZ [Interacting]
     Active Substance: DIGOXIN
     Indication: CARDIAC FAILURE
     Dosage: 125 UG, 1X/DAY (EVERY MON/WED/FRI)
     Route: 048
     Dates: start: 201610
  7. DIGOXIN SANDOZ [Interacting]
     Active Substance: DIGOXIN
     Dosage: 125 UG, 1X/DAY (MON-FRI)
     Route: 048
     Dates: start: 201612, end: 20170114
  8. PANTOPRAZOL [Concomitant]
     Active Substance: PANTOPRAZOLE SODIUM
     Dosage: UNK
  9. BELOC ZOK [Concomitant]
     Active Substance: METOPROLOL SUCCINATE
     Dosage: UNK
  10. TRIATEC [Concomitant]
     Active Substance: RAMIPRIL
     Dosage: UNK
  11. SERESTA [Concomitant]
     Active Substance: OXAZEPAM
     Dosage: UNK
  12. BEPANTHEN [Concomitant]
     Active Substance: DEXPANTHENOL
     Dosage: UNK
  13. ALDACTONE [Concomitant]
     Active Substance: SPIRONOLACTONE
     Dosage: UNK
  14. FLUIMUCIL [Concomitant]
     Active Substance: ACETYLCYSTEINE
     Dosage: UNK
  15. MOVICOL [Concomitant]
     Active Substance: POLYETHYLENE GLYCOL 3350\POTASSIUM CHLORIDE\SODIUM BICARBONATE\SODIUM CHLORIDE
     Dosage: UNK
  16. METOLAZONE. [Concomitant]
     Active Substance: METOLAZONE
     Dosage: UNK
  17. XYZAL [Concomitant]
     Active Substance: LEVOCETIRIZINE DIHYDROCHLORIDE
     Dosage: UNK
  18. CORDARONE [Interacting]
     Active Substance: AMIODARONE HYDROCHLORIDE
     Dosage: 200 MG, 3X/DAY
     Route: 048
     Dates: start: 20161219, end: 20170114

REACTIONS (4)
  - Drug interaction [Not Recovered/Not Resolved]
  - Cardiac failure [Fatal]
  - End stage renal disease [Fatal]
  - Toxicity to various agents [Not Recovered/Not Resolved]

NARRATIVE: CASE EVENT DATE: 20170114
